FAERS Safety Report 14099315 (Version 1)
Quarter: 2017Q4

REPORT INFORMATION
  Report Type: Report from Study
  Country: CA (occurrence: CA)
  Receive Date: 20171017
  Receipt Date: 20171017
  Transmission Date: 20180321
  Serious: Yes (Life-Threatening, Hospitalization, Other)
  Sender: FDA-Public Use
  Company Number: CA-AMGEN-CANSL2017156949

PATIENT
  Age: 65 Year
  Sex: Male
  Weight: 78 kg

DRUGS (2)
  1. KYPROLIS [Suspect]
     Active Substance: CARFILZOMIB
     Indication: PLASMA CELL MYELOMA
     Dosage: 29 MG, ON DAY 1,2,8,9,15,16
     Route: 042
     Dates: start: 20170822, end: 2017
  2. KYPROLIS [Suspect]
     Active Substance: CARFILZOMIB
     Dosage: REDUCED DOSE; ON DAY 1,2,8,9,15,16
     Route: 042
     Dates: start: 2017

REACTIONS (2)
  - Blood pressure increased [Not Recovered/Not Resolved]
  - Pneumonia [Recovered/Resolved]

NARRATIVE: CASE EVENT DATE: 20170929
